FAERS Safety Report 22232289 (Version 6)
Quarter: 2025Q2

REPORT INFORMATION
  Report Type: Report from Study
  Country: CA (occurrence: CA)
  Receive Date: 20230420
  Receipt Date: 20250611
  Transmission Date: 20250717
  Serious: Yes (Other)
  Sender: ROCHE
  Company Number: CA-ROCHE-3318944

PATIENT
  Age: 54 Year
  Sex: Male

DRUGS (1)
  1. OCREVUS [Suspect]
     Active Substance: OCRELIZUMAB
     Indication: Primary progressive multiple sclerosis
     Dosage: 600 MG EVERY 6 MONTH, CONCENTRATE FOR INTRAVENOUS INFUSION
     Route: 042
     Dates: start: 20220318

REACTIONS (5)
  - Multiple sclerosis [Unknown]
  - Throat irritation [Recovering/Resolving]
  - Gastrooesophageal reflux disease [Unknown]
  - Gait disturbance [Unknown]
  - COVID-19 [Unknown]

NARRATIVE: CASE EVENT DATE: 20240601
